FAERS Safety Report 8975399 (Version 2)
Quarter: 2013Q1

REPORT INFORMATION
  Report Type: Spontaneous
  Country: US (occurrence: US)
  Receive Date: 20121219
  Receipt Date: 20130131
  Transmission Date: 20140127
  Serious: Yes (Other)
  Sender: FDA-Public Use
  Company Number: US-PFIZER INC-2012320323

PATIENT
  Age: 53 Year
  Sex: Female

DRUGS (6)
  1. CHANTIX [Suspect]
     Indication: SMOKING CESSATION THERAPY
     Dosage: 0.5 MG, 2X/DAY
     Dates: start: 2012, end: 2012
  2. CHANTIX [Suspect]
     Dosage: UNK
     Dates: start: 2012, end: 2012
  3. CELEXA [Suspect]
     Indication: DEPRESSION
     Dosage: UNK
  4. WELLBUTRIN [Suspect]
     Indication: DEPRESSION
     Dosage: UNK
  5. WELLBUTRIN [Suspect]
     Dosage: UNK
     Dates: start: 2012, end: 201212
  6. KEFLEX [Suspect]
     Dosage: UNK

REACTIONS (6)
  - Depression [Unknown]
  - Mental status changes [Unknown]
  - Therapeutic response unexpected [Unknown]
  - Drug ineffective [Unknown]
  - Dry mouth [Unknown]
  - Drug hypersensitivity [Unknown]
